FAERS Safety Report 5077538-X (Version None)
Quarter: 2006Q3

REPORT INFORMATION
  Report Type: 
  Country: None (occurrence: None)
  Receive Date: 20060810
  Receipt Date: 20060329
  Transmission Date: 20061208
  Serious: No
  Sender: FDA-Public Use
  Company Number: US-GLAXOSMITHKLINE-A0599553A

PATIENT
  Age: 36 Year
  Sex: Female

DRUGS (3)
  1. PAXIL [Suspect]
     Indication: DEPRESSION
     Dosage: .5MG PER DAY
     Route: 048
     Dates: end: 20051201
  2. SYNTHROID [Concomitant]
  3. XANAX [Concomitant]

REACTIONS (2)
  - DEPRESSION [None]
  - DRUG WITHDRAWAL SYNDROME [None]
